FAERS Safety Report 9258579 (Version 1)
Quarter: 2013Q1

REPORT INFORMATION
  Report Type: Spontaneous
  Country: US (occurrence: None)
  Receive Date: 20121212
  Receipt Date: 20121212
  Transmission Date: 20140127
  Serious: No
  Sender: FDA-Public Use
  Company Number: 1211USA004853

PATIENT
  Sex: Female

DRUGS (3)
  1. PEGINTRON [Suspect]
     Indication: HEPATITIS C
     Dates: start: 20111209, end: 20121109
  2. REBETOL [Suspect]
     Indication: HEPATITIS C
     Dates: start: 20111209, end: 20121109
  3. VICTRELIS [Suspect]
     Indication: HEPATITIS C
     Dates: start: 20120106, end: 20121009

REACTIONS (5)
  - Somnolence [None]
  - Fatigue [None]
  - Leukopenia [None]
  - Alopecia [None]
  - Decreased appetite [None]
